FAERS Safety Report 7268146-0 (Version None)
Quarter: 2011Q1

REPORT INFORMATION
  Report Type: 
  Country: None (occurrence: None)
  Receive Date: 20110124
  Receipt Date: 20110111
  Transmission Date: 20110831
  Serious: Yes (Other)
  Sender: FDA-Public Use
  Company Number: GB-ACCORD-004057

PATIENT
  Age: 66 Year
  Sex: Female

DRUGS (4)
  1. EPIRUBICIN HYDROCHLORIDE [Suspect]
     Indication: INFLAMMATORY CARCINOMA OF THE BREAST
  2. CYCLOPHOSPHAMIDE [Suspect]
     Indication: INFLAMMATORY CARCINOMA OF THE BREAST
  3. FLUOROURACIL [Suspect]
     Indication: INFLAMMATORY CARCINOMA OF THE BREAST
  4. PACLITAXEL [Suspect]
     Indication: INFLAMMATORY CARCINOMA OF THE BREAST

REACTIONS (1)
  - CEREBRAL INFARCTION [None]
